FAERS Safety Report 4556389-6 (Version None)
Quarter: 2005Q1

REPORT INFORMATION
  Report Type: 
  Country: None (occurrence: None)
  Receive Date: 20050105
  Receipt Date: 20040806
  Transmission Date: 20050727
  Serious: Yes (Hospitalization, Other)
  Sender: FDA-Public Use
  Company Number: 20040800361

PATIENT
  Age: 54 Year
  Sex: Female

DRUGS (8)
  1. ISOFLURANE [Suspect]
     Indication: ANAESTHESIA
     Dates: start: 20040713, end: 20040713
  2. PROPOFOL [Concomitant]
  3. ATTRACURIM [Concomitant]
  4. NEOSTIGMINE [Concomitant]
  5. BUPIVACAINE [Concomitant]
  6. DIAMORPHINE [Concomitant]
  7. CEFUROXIME [Concomitant]
  8. METRONIDAZOLE [Concomitant]

REACTIONS (1)
  - HEPATIC NECROSIS [None]
